FAERS Safety Report 17143011 (Version 1)
Quarter: 2019Q4

REPORT INFORMATION
  Report Type: Spontaneous
  Country: US (occurrence: US)
  Receive Date: 20191211
  Receipt Date: 20191211
  Transmission Date: 20200122
  Serious: No
  Sender: FDA-Public Use
  Company Number: None

PATIENT
  Age: 41 Year
  Sex: Female
  Weight: 148.5 kg

DRUGS (12)
  1. MONTELUKAST [Concomitant]
     Active Substance: MONTELUKAST SODIUM
  2. ALBUTERNOL INHALER [Concomitant]
  3. BREO ELLIPTA [Suspect]
     Active Substance: FLUTICASONE FUROATE\VILANTEROL TRIFENATATE
     Indication: ASTHMA
     Dosage: ?          QUANTITY:30 INHALATION(S);?
     Route: 055
     Dates: start: 20191208
  4. ROSUVASTATIN. [Concomitant]
     Active Substance: ROSUVASTATIN
  5. COQ10 [Concomitant]
     Active Substance: UBIDECARENONE
  6. D3 10K UI DAILY [Concomitant]
  7. TUMS 1K CALCIUM DAILY [Concomitant]
  8. DAILY MULTI VITAMIN [Concomitant]
  9. FISH OIL 4K MCG DAILY [Concomitant]
  10. MELATONIN [Concomitant]
     Active Substance: MELATONIN
  11. PROBIOTIC [Concomitant]
     Active Substance: PROBIOTICS NOS
  12. 10K UI DAILY [Concomitant]

REACTIONS (3)
  - Pruritus [None]
  - Urticaria [None]
  - Oedema peripheral [None]

NARRATIVE: CASE EVENT DATE: 20191210
